FAERS Safety Report 10712016 (Version 1)
Quarter: 2015Q1

REPORT INFORMATION
  Report Type: Spontaneous
  Country: US (occurrence: US)
  Receive Date: 20150114
  Receipt Date: 20150114
  Transmission Date: 20150721
  Serious: No
  Sender: FDA-Public Use
  Company Number: US-ALLERGAN-1403741US

PATIENT
  Age: 35 Year
  Sex: Female

DRUGS (2)
  1. ACZONE [Suspect]
     Active Substance: DAPSONE
     Indication: PRODUCT USED FOR UNKNOWN INDICATION
     Dosage: APPLY TO AFFECTED AREA, BID
     Route: 061
     Dates: start: 201308
  2. MEDICATION NOS [Concomitant]
     Indication: PRODUCT USED FOR UNKNOWN INDICATION
     Route: 048

REACTIONS (3)
  - Asthenia [Unknown]
  - Fatigue [Unknown]
  - Muscle spasms [Unknown]
